FAERS Safety Report 15459421 (Version 1)
Quarter: 2018Q3

REPORT INFORMATION
  Report Type: Spontaneous
  Country: US (occurrence: US)
  Receive Date: 20180928
  Receipt Date: 20180928
  Transmission Date: 20181010
  Serious: Yes (Hospitalization)
  Sender: FDA-Public Use
  Company Number: None

PATIENT
  Age: 77 Year
  Weight: 47.17 kg

DRUGS (1)
  1. CEFTRIAXONE. [Suspect]
     Active Substance: CEFTRIAXONE
     Indication: EXTRADURAL ABSCESS
     Route: 041
     Dates: start: 20180921, end: 20180922

REACTIONS (4)
  - Eosinophilia [None]
  - Leukocytosis [None]
  - Rash maculo-papular [None]
  - Pyrexia [None]

NARRATIVE: CASE EVENT DATE: 20180922
